FAERS Safety Report 6567686-7 (Version None)
Quarter: 2010Q1

REPORT INFORMATION
  Report Type: 
  Country: None (occurrence: None)
  Receive Date: 20100203
  Receipt Date: 20100126
  Transmission Date: 20100710
  Serious: Yes (Death, Hospitalization)
  Sender: FDA-Public Use
  Company Number: US-BIOGENIDEC-2010BI002305

PATIENT
  Age: 55 Year
  Sex: Female

DRUGS (2)
  1. AVONEX [Suspect]
     Indication: MULTIPLE SCLEROSIS
     Route: 030
     Dates: start: 20040601, end: 20090201
  2. AVONEX [Suspect]
     Route: 030
     Dates: start: 20020627

REACTIONS (3)
  - CARDIAC ARREST [None]
  - CHEST PAIN [None]
  - DEATH [None]
